FAERS Safety Report 9468547 (Version 2)
Quarter: 2013Q4

REPORT INFORMATION
  Report Type: Spontaneous
  Country: US (occurrence: US)
  Receive Date: 20130821
  Receipt Date: 20131024
  Transmission Date: 20140711
  Serious: Yes (Hospitalization)
  Sender: FDA-Public Use
  Company Number: US-GLAXOSMITHKLINE-A1037500A

PATIENT
  Age: 85 Year
  Sex: Male

DRUGS (8)
  1. ADVAIR [Suspect]
     Indication: ASTHMA
     Dosage: 2PUFF TWICE PER DAY
     Route: 055
     Dates: start: 2012, end: 20130812
  2. METOPROLOL [Concomitant]
  3. LOSARTAN [Concomitant]
  4. WARFARIN [Concomitant]
  5. PROSCAR [Concomitant]
  6. ALPHAGAN EYE DROPS [Concomitant]
  7. LATANOPROST [Concomitant]
  8. LASIX [Concomitant]

REACTIONS (13)
  - Dyspnoea [Recovering/Resolving]
  - Respiratory rate increased [Recovering/Resolving]
  - Insomnia [Recovering/Resolving]
  - Constipation [Recovering/Resolving]
  - Fluid retention [Recovering/Resolving]
  - Weight increased [Recovering/Resolving]
  - Malaise [Recovering/Resolving]
  - Heart rate abnormal [Recovering/Resolving]
  - Cardiac failure congestive [Recovering/Resolving]
  - Urine output decreased [Recovering/Resolving]
  - Weight decreased [Unknown]
  - Local swelling [Unknown]
  - Cough [Unknown]
